FAERS Safety Report 12488924 (Version 1)
Quarter: 2016Q2

REPORT INFORMATION
  Report Type: Spontaneous
  Country: NZ (occurrence: NZ)
  Receive Date: 20160622
  Receipt Date: 20160622
  Transmission Date: 20160815
  Serious: Yes (Death, Other)
  Sender: FDA-Public Use
  Company Number: NZ-ABBVIE-08P-118-0493712-00

PATIENT
  Age: 68 Year
  Sex: Female

DRUGS (12)
  1. CLOPIDOGREL [Concomitant]
     Active Substance: CLOPIDOGREL BISULFATE
     Indication: PRODUCT USED FOR UNKNOWN INDICATION
     Dates: start: 200801
  2. BENDROFLUAZIDE [Concomitant]
     Active Substance: BENDROFLUMETHIAZIDE
     Indication: PRODUCT USED FOR UNKNOWN INDICATION
  3. METOPROLOL. [Concomitant]
     Active Substance: METOPROLOL
     Indication: HYPERTENSION
     Route: 048
     Dates: start: 2006
  4. FOLIC ACID. [Concomitant]
     Active Substance: FOLIC ACID
     Indication: PRODUCT USED FOR UNKNOWN INDICATION
  5. PREDNISONE. [Suspect]
     Active Substance: PREDNISONE
     Indication: RHEUMATOID ARTHRITIS
     Route: 048
     Dates: start: 2000
  6. SIMVASTATIN. [Suspect]
     Active Substance: SIMVASTATIN
     Indication: MYOCARDIAL ISCHAEMIA
     Route: 048
     Dates: start: 200802
  7. HUMIRA [Suspect]
     Active Substance: ADALIMUMAB
     Indication: RHEUMATOID ARTHRITIS
     Route: 058
     Dates: start: 200603
  8. OMEPRAZOLE. [Concomitant]
     Active Substance: OMEPRAZOLE
     Indication: PRODUCT USED FOR UNKNOWN INDICATION
  9. METHOTREXATE [Suspect]
     Active Substance: METHOTREXATE
     Indication: RHEUMATOID ARTHRITIS
     Route: 058
     Dates: start: 199911
  10. CALIFEROL [Concomitant]
     Indication: PRODUCT USED FOR UNKNOWN INDICATION
  11. SULPHASALAZINE [Suspect]
     Active Substance: SULFASALAZINE
     Indication: COLITIS
     Route: 048
     Dates: start: 1996
  12. CALCIUM [Concomitant]
     Active Substance: CALCIUM
     Indication: PRODUCT USED FOR UNKNOWN INDICATION

REACTIONS (18)
  - Respiratory failure [Fatal]
  - Cardiomegaly [Fatal]
  - Cardiac failure [Fatal]
  - Myalgia [Unknown]
  - Cardiac failure congestive [Fatal]
  - Acute respiratory distress syndrome [Unknown]
  - C-reactive protein abnormal [Unknown]
  - White blood cell count increased [Unknown]
  - Musculoskeletal stiffness [Unknown]
  - Dyspnoea [Fatal]
  - Pneumonitis [Fatal]
  - Myocardial infarction [Unknown]
  - Pneumonia [Fatal]
  - Anaemia [Unknown]
  - Cough [Fatal]
  - Rhinitis [Fatal]
  - Lung infiltration [Unknown]
  - Cellulitis [Unknown]

NARRATIVE: CASE EVENT DATE: 20080625
